FAERS Safety Report 6984013-1 (Version None)
Quarter: 2010Q3

REPORT INFORMATION
  Report Type: 
  Country: None (occurrence: None)
  Receive Date: 20100915
  Receipt Date: 20091016
  Transmission Date: 20110219
  Serious: No
  Sender: FDA-Public Use
  Company Number: US-ALLERGAN-0914422US

PATIENT
  Sex: Female

DRUGS (1)
  1. AZELEX [Suspect]
     Indication: ROSACEA
     Dosage: UNK
     Route: 061

REACTIONS (1)
  - DRUG INEFFECTIVE [None]
